FAERS Safety Report 9522361 (Version 1)
Quarter: 2013Q1

REPORT INFORMATION
  Report Type: Spontaneous
  Country: US (occurrence: None)
  Receive Date: 20130305
  Receipt Date: 20130305
  Transmission Date: 20140127
  Serious: Yes (Disabling)
  Sender: FDA-Public Use
  Company Number: 163-21880-12022698

PATIENT
  Age: 76 Year
  Sex: Female
  Weight: 58.97 kg

DRUGS (5)
  1. REVLIMID [Suspect]
     Indication: PLASMA CELL MYELOMA
     Dosage: 10 MG, 1 IN 1 D, PO
     Route: 048
     Dates: start: 20080222, end: 20111007
  2. ASPIRIN (ACETYLSALICYLIC ACID) (UNKNOWN) (ACETYLSALICYLIC ACID) [Concomitant]
  3. CALCIUM + D (OS-CAL) (UNKNOWN) [Concomitant]
  4. ZOMETA (ZOLEDRONICACID) (UNKNOWN) [Concomitant]
  5. BISPHOSPHATE (BISHOSPHONATES) (UNKNOWN) [Concomitant]

REACTIONS (2)
  - Pathological fracture [None]
  - Musculoskeletal chest pain [None]
